FAERS Safety Report 11213136 (Version 1)
Quarter: 2015Q2

REPORT INFORMATION
  Report Type: Spontaneous
  Country: GB (occurrence: GB)
  Receive Date: 20150623
  Receipt Date: 20150623
  Transmission Date: 20150821
  Serious: Yes (Hospitalization)
  Sender: FDA-Public Use
  Company Number: PHHY2015GB071499

PATIENT
  Age: 59 Year
  Sex: Male

DRUGS (5)
  1. RANITIDINE [Suspect]
     Active Substance: RANITIDINE\RANITIDINE HYDROCHLORIDE
     Indication: PRODUCT USED FOR UNKNOWN INDICATION
     Route: 048
  2. METFORMIN [Concomitant]
     Active Substance: METFORMIN HYDROCHLORIDE
     Indication: DIABETES MELLITUS
     Dosage: 1 G, BID
     Route: 048
  3. BISOPROLOL [Concomitant]
     Active Substance: BISOPROLOL
     Indication: PRODUCT USED FOR UNKNOWN INDICATION
     Dosage: 10 MG, QD
     Route: 048
  4. GLICLAZIDE [Concomitant]
     Active Substance: GLICLAZIDE
     Indication: PRODUCT USED FOR UNKNOWN INDICATION
     Dosage: 40 MG, BID
     Route: 048
  5. ATORVASTATIN [Concomitant]
     Active Substance: ATORVASTATIN
     Indication: PRODUCT USED FOR UNKNOWN INDICATION
     Dosage: 10 MG, QD
     Route: 048

REACTIONS (19)
  - Atypical pneumonia [Unknown]
  - Hypoalbuminaemia [Unknown]
  - Melaena [Unknown]
  - Dyspnoea [Unknown]
  - Liver function test abnormal [Unknown]
  - Stevens-Johnson syndrome [Recovered/Resolved]
  - Renal impairment [Recovered/Resolved]
  - Gastritis [Unknown]
  - Pleural effusion [Unknown]
  - Eosinophil count increased [Recovered/Resolved]
  - Duodenal ulcer [Unknown]
  - Respiratory failure [Unknown]
  - Hyponatraemia [Unknown]
  - Atelectasis [Unknown]
  - Erythema multiforme [Recovered/Resolved]
  - Conjunctival disorder [Unknown]
  - Hepatic function abnormal [Recovering/Resolving]
  - Atrial fibrillation [Unknown]
  - Neuropathy peripheral [Recovered/Resolved]

NARRATIVE: CASE EVENT DATE: 20150513
